FAERS Safety Report 14914471 (Version 1)
Quarter: 2018Q2

REPORT INFORMATION
  Report Type: Spontaneous
  Country: US (occurrence: US)
  Receive Date: 20180501
  Receipt Date: 20180501
  Transmission Date: 20180711
  Serious: Yes (Hospitalization, Disabling, Other)
  Sender: FDA-Public Use
  Company Number: None

PATIENT
  Age: 45 Year
  Sex: Male
  Weight: 78.02 kg

DRUGS (7)
  1. REMERON [Suspect]
     Active Substance: MIRTAZAPINE
     Indication: POST-TRAUMATIC STRESS DISORDER
     Dosage: 1 PILL AT BEDTIME MOUTH
     Route: 048
     Dates: start: 20160628, end: 2017
  2. REMERON [Suspect]
     Active Substance: MIRTAZAPINE
     Indication: INSOMNIA
     Dosage: 1 PILL AT BEDTIME MOUTH
     Route: 048
     Dates: start: 20160628, end: 2017
  3. OLANZAPINE (ZYPREXA) [Concomitant]
  4. PROZOSIN (MINIPRESS) [Concomitant]
  5. REMERON [Suspect]
     Active Substance: MIRTAZAPINE
     Indication: ANXIETY
     Dosage: 1 PILL AT BEDTIME MOUTH
     Route: 048
     Dates: start: 20160628, end: 2017
  6. PROZAC [Concomitant]
     Active Substance: FLUOXETINE HYDROCHLORIDE
  7. REMERON [Suspect]
     Active Substance: MIRTAZAPINE
     Indication: DEPRESSION
     Dosage: 1 PILL AT BEDTIME MOUTH
     Route: 048
     Dates: start: 20160628, end: 2017

REACTIONS (4)
  - Wound [None]
  - Rash [None]
  - Skin disorder [None]
  - Skin lesion [None]

NARRATIVE: CASE EVENT DATE: 20170307
